FAERS Safety Report 4940053-5 (Version None)
Quarter: 2006Q1

REPORT INFORMATION
  Report Type: 
  Country: None (occurrence: None)
  Receive Date: 20060310
  Receipt Date: 20060224
  Transmission Date: 20060701
  Serious: Yes (Other)
  Sender: FDA-Public Use
  Company Number: JP-ROCHE-438505

PATIENT
  Age: 42 Year
  Sex: Female

DRUGS (3)
  1. TAMIFLU [Suspect]
     Route: 048
     Dates: start: 20060202
  2. UNSPECIFIED MEDICATION [Concomitant]
     Dosage: REPORTED AS REPLAS_NO.3()
     Route: 041
     Dates: start: 20060202, end: 20060202
  3. NYROZIN [Concomitant]
     Route: 041
     Dates: start: 20060202, end: 20060202

REACTIONS (2)
  - EXCITABILITY [None]
  - MEMORY IMPAIRMENT [None]
